FAERS Safety Report 9966990 (Version 2)
Quarter: 2014Q1

REPORT INFORMATION
  Report Type: Spontaneous
  Country: DE (occurrence: DE)
  Receive Date: 20140305
  Receipt Date: 20140305
  Transmission Date: 20141002
  Serious: Yes (Hospitalization)
  Sender: FDA-Public Use
  Company Number: DE-US-EMD SERONO, INC.-7270689

PATIENT
  Sex: Female

DRUGS (2)
  1. REBIF [Suspect]
     Indication: MULTIPLE SCLEROSIS
     Route: 058
     Dates: start: 20140207, end: 201402
  2. REBIF [Suspect]
     Route: 058
     Dates: start: 20140224

REACTIONS (2)
  - Multiple sclerosis relapse [Unknown]
  - Nausea [Not Recovered/Not Resolved]
